FAERS Safety Report 17854508 (Version 1)
Quarter: 2020Q2

REPORT INFORMATION
  Report Type: Spontaneous
  Country: US (occurrence: US)
  Receive Date: 20200603
  Receipt Date: 20200603
  Transmission Date: 20200714
  Serious: No
  Sender: FDA-Public Use
  Company Number: US-SA-2020SA141265

PATIENT

DRUGS (2)
  1. EXTAVIA [Concomitant]
     Active Substance: INTERFERON BETA-1B
  2. AUBAGIO [Suspect]
     Active Substance: TERIFLUNOMIDE
     Indication: MULTIPLE SCLEROSIS
     Dosage: 14 MG, QD
     Dates: start: 20191014

REACTIONS (1)
  - Platelet count decreased [Unknown]
